FAERS Safety Report 24344393 (Version 1)
Quarter: 2024Q3

REPORT INFORMATION
  Report Type: Spontaneous
  Country: US (occurrence: US)
  Receive Date: 20240920
  Receipt Date: 20240920
  Transmission Date: 20241016
  Serious: No
  Sender: BIOVITRUM
  Company Number: US-BIOVITRUM-2024-US-012279

PATIENT
  Sex: Female

DRUGS (2)
  1. VONJO [Suspect]
     Active Substance: PACRITINIB
     Indication: Product used for unknown indication
     Dosage: BID (TWO TIMES A DAY)
  2. VONJO [Suspect]
     Active Substance: PACRITINIB
     Dosage: BID (TWO TIMES A DAY)

REACTIONS (2)
  - Contusion [Unknown]
  - Petechiae [Unknown]
